FAERS Safety Report 7350976-8 (Version None)
Quarter: 2011Q1

REPORT INFORMATION
  Report Type: 
  Country: None (occurrence: None)
  Receive Date: 20110314
  Receipt Date: 20110307
  Transmission Date: 20110831
  Serious: Yes (Hospitalization)
  Sender: FDA-Public Use
  Company Number: US-JNJFOC-20110303952

PATIENT
  Age: 54 Year
  Sex: Female
  Weight: 62.6 kg

DRUGS (4)
  1. INVEGA SUSTENNA [Suspect]
     Indication: SCHIZOPHRENIA
     Route: 030
  2. BENADRYL [Concomitant]
     Route: 065
  3. ATIVAN [Concomitant]
     Route: 065
  4. INVEGA SUSTENNA [Suspect]
     Route: 030

REACTIONS (1)
  - DRUG INEFFECTIVE [None]
